FAERS Safety Report 9778614 (Version 1)
Quarter: 2013Q4

REPORT INFORMATION
  Report Type: Spontaneous
  Country: US (occurrence: None)
  Receive Date: 20131219
  Receipt Date: 20131219
  Transmission Date: 20140711
  Serious: Yes (Other)
  Sender: FDA-Public Use
  Company Number: 2009S1007645

PATIENT
  Age: 73 Year
  Sex: Female
  Weight: 73.48 kg

DRUGS (11)
  1. FLEET PHOSPHO-SODA [Suspect]
     Indication: COLONOSCOPY
     Dates: start: 20050803, end: 20050803
  2. HYDROCHLOROTHIAZIDES (HYDROCHLOROTHIAZIDE) [Concomitant]
  3. BENICAR (OLMESARTAN MEDOXOMIL) [Concomitant]
  4. NORVASC (AMLODIPINE BESILATE) [Concomitant]
  5. SYNTHROID (LEVOTHYROXINE SODIUM) [Concomitant]
  6. QUININE SULFATE (QUINNE SULFATE) [Concomitant]
  7. TRAZODONE (TRAZODONE) [Concomitant]
  8. MOTRIN (IBUPROFEN) [Concomitant]
  9. CALCIUM (CALCIUM) [Concomitant]
  10. MULTIVITAMIN (ERGOCALCIFEROL, ASCORBIC ACID, PYRIDOXINE HYDROCHLORIDE, THIAMINE HYDROCHLORIDE, RETINOL, RIBOFLAVIN, NICOTINAMIDE, CALCIUM PANTOTHENATE) [Concomitant]
  11. LODINE (ETODOLAC) [Concomitant]

REACTIONS (6)
  - Back pain [None]
  - Gait disturbance [None]
  - Abdominal pain [None]
  - Diarrhoea [None]
  - Renal tubular necrosis [None]
  - Renal failure [None]
